FAERS Safety Report 4499646-4 (Version None)
Quarter: 2004Q4

REPORT INFORMATION
  Report Type: 
  Country: None (occurrence: None)
  Receive Date: 20040928
  Receipt Date: 20040824
  Transmission Date: 20050328
  Serious: No
  Sender: FDA-Public Use
  Company Number: 04P-163-0271363-00

PATIENT
  Age: 60 Year
  Sex: Female
  Weight: 72.5755 kg

DRUGS (11)
  1. HUMIRA [Suspect]
     Indication: RHEUMATOID ARTHRITIS
     Dosage: 40 MG 1 IN 2 WK
     Dates: start: 20040601, end: 20040701
  2. METHOTREXATE [Concomitant]
  3. MECLOFENAMATE SODIUM [Concomitant]
  4. MOEXIPRIL HYDROCHLORIDE [Concomitant]
  5. CONJUGATED ESTROGEN [Concomitant]
  6. HYDROXYCHLOROQUINE PHOSPHATE [Concomitant]
  7. FOLIC ACID [Concomitant]
  8. HYDROCHLOROTHIAZIDE [Concomitant]
  9. RISEDRONATE SODIUM [Concomitant]
  10. PREDNISONE [Concomitant]
  11. MEDROXYPROGESTERONE ACETATE [Concomitant]

REACTIONS (1)
  - URINARY TRACT INFECTION [None]
